FAERS Safety Report 9922978 (Version 2)
Quarter: 2014Q1

REPORT INFORMATION
  Report Type: Spontaneous
  Country: US (occurrence: US)
  Receive Date: 20140225
  Receipt Date: 20140225
  Transmission Date: 20141002
  Serious: Yes (Disabling)
  Sender: FDA-Public Use
  Company Number: US-GE HEALTHCARE MEDICAL DIAGNOSTICS-OSCN-PR-0902S-0097

PATIENT
  Age: 32 Year
  Sex: Male

DRUGS (16)
  1. OMNISCAN [Suspect]
     Indication: PRODUCT USED FOR UNKNOWN INDICATION
     Route: 042
     Dates: start: 19990828, end: 19990828
  2. OMNISCAN [Suspect]
     Route: 042
     Dates: start: 20060406, end: 20060406
  3. MAGNEVIST [Suspect]
     Indication: NAUSEA
     Route: 042
     Dates: start: 20050622, end: 20050622
  4. MAGNEVIST [Suspect]
     Indication: DIPLOPIA
     Route: 042
     Dates: start: 20050623, end: 20050623
  5. MAGNEVIST [Suspect]
     Indication: SOMNOLENCE
     Route: 042
     Dates: start: 20051010, end: 20051010
  6. ERYTHROPOIETIN [Concomitant]
  7. EPOGEN [Concomitant]
  8. MINOXIDIL [Concomitant]
  9. VIAGRA [Concomitant]
  10. PREDNISONE [Concomitant]
  11. OXYCONTIN [Concomitant]
  12. THYMOGLOBULIN [Concomitant]
  13. OKT3 [Concomitant]
  14. IVIG [Concomitant]
  15. FERRLECIT [Concomitant]
  16. COUMADIN [Concomitant]

REACTIONS (1)
  - Nephrogenic systemic fibrosis [Not Recovered/Not Resolved]
